FAERS Safety Report 6698410-5 (Version None)
Quarter: 2010Q2

REPORT INFORMATION
  Report Type: 
  Country: None (occurrence: None)
  Receive Date: 20100427
  Receipt Date: 20100420
  Transmission Date: 20101027
  Serious: Yes (Other)
  Sender: FDA-Public Use
  Company Number: CH-ROCHE-698239

PATIENT
  Age: 68 Year

DRUGS (3)
  1. BEVACIZUMAB [Suspect]
     Indication: COLORECTAL CANCER
     Route: 042
     Dates: start: 20090317, end: 20091215
  2. CAPECITABINE [Suspect]
     Indication: COLORECTAL CANCER
     Route: 048
     Dates: start: 20040712, end: 20041025
  3. OXALIPLATIN [Concomitant]
     Indication: COLORECTAL CANCER
     Dates: start: 20040712, end: 20041025

REACTIONS (3)
  - COLORECTAL CANCER [None]
  - HYPERTENSION [None]
  - MALIGNANT NEOPLASM PROGRESSION [None]
